FAERS Safety Report 8127517-0 (Version None)
Quarter: 2012Q1

REPORT INFORMATION
  Report Type: 
  Country: None (occurrence: None)
  Receive Date: 20120210
  Receipt Date: 20120206
  Transmission Date: 20120608
  Serious: Yes (Hospitalization)
  Sender: FDA-Public Use
  Company Number: FR-PFIZER INC-2011254620

PATIENT
  Age: 52 Year
  Sex: Female

DRUGS (11)
  1. POTASSIUM CHLORIDE [Concomitant]
     Dosage: UNK
     Dates: end: 20110827
  2. MORPHINE SULFATE [Suspect]
     Dosage: 10 MG
     Route: 048
     Dates: start: 20110820, end: 20110828
  3. LOXEN [Concomitant]
  4. KEPPRA [Concomitant]
     Dosage: 500 MG, 2X/DAY
     Dates: start: 20110818
  5. PIPERACILLIN/TAZOBACTAM [Suspect]
     Indication: LUNG DISORDER
     Dosage: 4 G
     Dates: start: 20110825, end: 20110829
  6. AUGMENTIN '125' [Suspect]
     Indication: LUNG DISORDER
     Dosage: 500/62.5 MG
     Dates: start: 20110825, end: 20110825
  7. TEMAZEPAM [Suspect]
     Dosage: 50 MG
     Route: 048
     Dates: start: 20110820, end: 20110829
  8. PRIMPERAN TAB [Suspect]
     Dosage: 10 MG
     Route: 048
     Dates: start: 20110821, end: 20110828
  9. ACUPAN [Suspect]
     Dosage: UNK
     Dates: start: 20110819, end: 20110830
  10. LOVENOX [Concomitant]
  11. ROVAMYCIN [Suspect]
     Indication: LUNG DISORDER
     Dosage: 1 500 000 UI
     Dates: start: 20110825, end: 20110826

REACTIONS (3)
  - PYREXIA [None]
  - LUNG DISORDER [None]
  - DRUG HYPERSENSITIVITY [None]
